FAERS Safety Report 9099335 (Version 1)
Quarter: 2013Q1

REPORT INFORMATION
  Report Type: Spontaneous
  Country: US (occurrence: US)
  Receive Date: 20130214
  Receipt Date: 20130214
  Transmission Date: 20140127
  Serious: No
  Sender: FDA-Public Use
  Company Number: US-COVIDIEN/TYCO HEALTHCARE/MALLINCKRODT-T201204102

PATIENT
  Age: 61 Year
  Sex: Male

DRUGS (3)
  1. FENTANYL TRANSDERMAL SYSTEM [Suspect]
     Indication: BACK PAIN
     Dosage: 50 UG/HR, Q 72 HOURS, SOMETIMES SOONER
     Dates: start: 2012
  2. FENTANYL TRANSDERMAL SYSTEM [Suspect]
     Indication: NECK PAIN
  3. ANTIDEPRESSANTS [Concomitant]
     Dosage: UNK

REACTIONS (4)
  - Balance disorder [Unknown]
  - Gait disturbance [Unknown]
  - Insomnia [Unknown]
  - Drug effect decreased [Unknown]
